FAERS Safety Report 25144440 (Version 1)
Quarter: 2025Q2

REPORT INFORMATION
  Report Type: Spontaneous
  Country: CA (occurrence: None)
  Receive Date: 20250401
  Receipt Date: 20250401
  Transmission Date: 20250717
  Serious: Yes (Other)
  Sender: ORION
  Company Number: CA-PFIZER INC-202500066433

PATIENT
  Age: 61 Year
  Sex: Male

DRUGS (15)
  1. METHOTREXATE [Suspect]
     Active Substance: METHOTREXATE
     Indication: Product used for unknown indication
     Dates: end: 2020
  2. METHOTREXATE [Suspect]
     Active Substance: METHOTREXATE
  3. METHOTREXATE [Suspect]
     Active Substance: METHOTREXATE
  4. METHOTREXATE [Suspect]
     Active Substance: METHOTREXATE
  5. METHOTREXATE [Suspect]
     Active Substance: METHOTREXATE
     Dates: start: 202409
  6. CODEINE [Concomitant]
     Active Substance: CODEINE
     Indication: Dyspepsia
  7. CODEINE [Concomitant]
     Active Substance: CODEINE
  8. FOLIC ACID [Concomitant]
     Active Substance: FOLIC ACID
  9. FOLIC ACID [Concomitant]
     Active Substance: FOLIC ACID
  10. CHOLESTYRAMINE [Concomitant]
     Active Substance: CHOLESTYRAMINE
     Indication: Dyspepsia
  11. PANTOPRAZOLE [Concomitant]
     Active Substance: PANTOPRAZOLE
  12. TETRACYCLINE HYDROCHLORIDE [Concomitant]
     Active Substance: TETRACYCLINE HYDROCHLORIDE
  13. CHOLECALCIFEROL [Concomitant]
     Active Substance: CHOLECALCIFEROL
  14. CHOLECALCIFEROL [Concomitant]
     Active Substance: CHOLECALCIFEROL
  15. VITAMIN B12 METHYLCOBALAMIN SUBLINGUAL [Concomitant]

REACTIONS (3)
  - Ileal stenosis [Unknown]
  - Arthralgia [Unknown]
  - Nausea [Unknown]
